FAERS Safety Report 8204458-1 (Version None)
Quarter: 2012Q1

REPORT INFORMATION
  Report Type: 
  Country: None (occurrence: None)
  Receive Date: 20120313
  Receipt Date: 20120301
  Transmission Date: 20120608
  Serious: Yes (Other)
  Sender: FDA-Public Use
  Company Number: JP-JNJFOC-20120208057

PATIENT

DRUGS (2)
  1. TRAMADOL HYDROCHLORIDE/ACETAMINOPHEN [Suspect]
     Indication: PAIN
     Dosage: 1 PER 1 DAY
     Route: 048
     Dates: start: 20110101
  2. TRAMADOL HYDROCHLORIDE/ACETAMINOPHEN [Suspect]
     Dosage: 1 PER 1 DAY
     Route: 048

REACTIONS (4)
  - GENERAL PHYSICAL CONDITION ABNORMAL [None]
  - ABDOMINAL DISCOMFORT [None]
  - GASTRITIS [None]
  - DECREASED APPETITE [None]
